FAERS Safety Report 25803814 (Version 1)
Quarter: 2025Q3

REPORT INFORMATION
  Report Type: Report from Study
  Country: EU (occurrence: EU)
  Receive Date: 20250915
  Receipt Date: 20250915
  Transmission Date: 20251021
  Serious: Yes (Other)
  Sender: ROCHE
  Company Number: EU-ROCHE-10000384218

PATIENT

DRUGS (6)
  1. ATEZOLIZUMAB [Suspect]
     Active Substance: ATEZOLIZUMAB
     Indication: Malignant melanoma
     Route: 065
  2. VEMURAFENIB [Suspect]
     Active Substance: VEMURAFENIB
     Indication: Malignant melanoma
     Route: 065
  3. NELVUTAMIG [Suspect]
     Active Substance: NELVUTAMIG
     Indication: Malignant melanoma
     Route: 065
  4. NIVOLUMAB [Suspect]
     Active Substance: NIVOLUMAB
     Indication: Malignant melanoma
     Route: 065
  5. SPARTALIZUMAB [Suspect]
     Active Substance: SPARTALIZUMAB
     Indication: Malignant melanoma
     Route: 065
  6. RIBOCICLIB [Suspect]
     Active Substance: RIBOCICLIB
     Indication: Malignant melanoma
     Route: 065

REACTIONS (18)
  - Lipase increased [Unknown]
  - Diarrhoea [Unknown]
  - Colitis [Unknown]
  - Abdominal pain [Unknown]
  - Nausea [Unknown]
  - Thyroiditis [Unknown]
  - Hypothyroidism [Unknown]
  - Hyperthyroidism [Unknown]
  - Hypophysitis [Unknown]
  - Dermatitis [Unknown]
  - Rash [Unknown]
  - Vitiligo [Unknown]
  - Liver disorder [Unknown]
  - Rheumatic disorder [Unknown]
  - Blood disorder [Unknown]
  - Eye disorder [Unknown]
  - Cardiovascular disorder [Unknown]
  - Mucosal disorder [Unknown]
